FAERS Safety Report 19911415 (Version 1)
Quarter: 2021Q4

REPORT INFORMATION
  Report Type: Spontaneous
  Country: US (occurrence: US)
  Receive Date: 20211004
  Receipt Date: 20211004
  Transmission Date: 20220303
  Serious: No
  Sender: FDA-Public Use
  Company Number: US-TEVA-2021-US-1959350

PATIENT
  Sex: Female
  Weight: 54.43 kg

DRUGS (12)
  1. CYCLOBENZAPRINE HYDROCHLORIDE [Suspect]
     Active Substance: CYCLOBENZAPRINE HYDROCHLORIDE
     Indication: Muscle relaxant therapy
     Route: 065
  2. GABAPENTIN [Suspect]
     Active Substance: GABAPENTIN
     Indication: Neuralgia
     Route: 065
  3. DIAZEPAM [Suspect]
     Active Substance: DIAZEPAM
     Indication: Insomnia
     Route: 065
  4. NEURONTIN [Suspect]
     Active Substance: GABAPENTIN
     Indication: Neuralgia
     Route: 065
  5. LYRICA [Suspect]
     Active Substance: PREGABALIN
     Indication: Neuralgia
     Route: 065
  6. ZOLOFT [Concomitant]
     Active Substance: SERTRALINE HYDROCHLORIDE
     Indication: Pain
     Dosage: 1 TABLET BY MOUTH
     Route: 048
     Dates: start: 1990
  7. ZOLOFT [Concomitant]
     Active Substance: SERTRALINE HYDROCHLORIDE
     Indication: Pain
     Route: 065
  8. WELLBUTRIN [Concomitant]
     Active Substance: BUPROPION HYDROCHLORIDE
     Indication: Asthenia
     Route: 065
  9. TAXOL [Concomitant]
     Active Substance: PACLITAXEL
     Indication: Neoplasm malignant
     Route: 042
  10. LEVOTHYROXINE [Concomitant]
     Active Substance: LEVOTHYROXINE
     Indication: Autoimmune thyroiditis
     Dosage: 1 TABLET BY MOUTH
     Route: 065
  11. Unspecified authorized generic Zoloft [Concomitant]
     Indication: Pain
     Route: 065
  12. Unspecified generic Zoloft [Concomitant]
     Indication: Pain
     Dosage: 1 TABLET BY MOUTH
     Route: 048

REACTIONS (5)
  - Irritability [Unknown]
  - Feeling abnormal [Recovered/Resolved]
  - Drug intolerance [Unknown]
  - Adverse drug reaction [Unknown]
  - Product use in unapproved indication [Unknown]
